FAERS Safety Report 25786016 (Version 2)
Quarter: 2025Q4

REPORT INFORMATION
  Report Type: Report from Study
  Country: US (occurrence: US)
  Receive Date: 20250910
  Receipt Date: 20251013
  Transmission Date: 20260118
  Serious: Yes (Disabling, Other)
  Sender: NOVARTIS
  Company Number: US-002147023-NVSC2025US139670

PATIENT
  Age: 49 Year
  Sex: Female

DRUGS (1)
  1. KESIMPTA [Suspect]
     Active Substance: OFATUMUMAB
     Indication: Multiple sclerosis
     Dosage: 20 MG, QMO
     Route: 058
     Dates: start: 20250807

REACTIONS (10)
  - Loss of consciousness [Unknown]
  - Syncope [Unknown]
  - Fall [Unknown]
  - Pyrexia [Unknown]
  - Throat irritation [Unknown]
  - Ear pruritus [Unknown]
  - Asthenia [Unknown]
  - Hypokinesia [Recovering/Resolving]
  - Condition aggravated [Unknown]
  - Drug intolerance [Unknown]

NARRATIVE: CASE EVENT DATE: 20250808
